FAERS Safety Report 8360583-6 (Version None)
Quarter: 2012Q2

REPORT INFORMATION
  Report Type: 
  Country: None (occurrence: None)
  Receive Date: 20120515
  Receipt Date: 20120512
  Transmission Date: 20120825
  Serious: Yes (Death, Life-Threatening, Hospitalization)
  Sender: FDA-Public Use
  Company Number: PHHO2010CZ19869

PATIENT
  Sex: Male
  Weight: 83 kg

DRUGS (9)
  1. TACROLIMUS [Suspect]
     Indication: LIVER TRANSPLANT
     Dosage: 1 MG, BID
     Route: 048
     Dates: start: 20091222
  2. TACROLIMUS [Suspect]
     Dosage: 0.5 MG, BID
     Route: 048
     Dates: start: 20110104
  3. PREDNISONE TAB [Concomitant]
     Indication: LIVER TRANSPLANT
     Dosage: 10 MG, QD
     Route: 048
     Dates: start: 20100215
  4. EVEROLIMUS [Suspect]
     Dosage: 0.5 MG, BID
     Route: 048
     Dates: start: 20110712
  5. EVEROLIMUS [Suspect]
     Dosage: 0.5 MG, BID
     Route: 048
     Dates: start: 20110413
  6. EVEROLIMUS [Suspect]
     Dosage: 1 MG, BID
     Route: 048
     Dates: start: 20100226
  7. EVEROLIMUS [Suspect]
     Indication: LIVER TRANSPLANT
     Dosage: 1 MG, BID
     Route: 048
     Dates: start: 20100119
  8. EVEROLIMUS [Suspect]
     Dosage: 0.5 MG, QD
     Route: 048
     Dates: start: 20111101, end: 20111107
  9. TACROLIMUS [Suspect]
     Dosage: 0.5 MG, QD
     Route: 048
     Dates: start: 20111101, end: 20111107

REACTIONS (11)
  - SEPTIC SHOCK [None]
  - OSTEOMYELITIS [None]
  - DISEASE PROGRESSION [None]
  - PNEUMONIA STAPHYLOCOCCAL [None]
  - RENAL FAILURE [None]
  - COMPLICATIONS OF TRANSPLANTED LIVER [None]
  - LOWER RESPIRATORY TRACT INFECTION [None]
  - PYREXIA [None]
  - PNEUMOCYSTIS JIROVECI PNEUMONIA [None]
  - HEPATIC LESION [None]
  - RESPIRATORY FAILURE [None]
